FAERS Safety Report 14087732 (Version 1)
Quarter: 2017Q4

REPORT INFORMATION
  Report Type: Report from Study
  Country: US (occurrence: CA)
  Receive Date: 20171013
  Receipt Date: 20171013
  Transmission Date: 20180321
  Serious: Yes (Hospitalization, Other)
  Sender: FDA-Public Use
  Company Number: US-SUNOVION-2014000646

PATIENT
  Age: 63 Year
  Sex: Female

DRUGS (10)
  1. GLYCOPYRROLATE. [Suspect]
     Active Substance: GLYCOPYRROLATE
     Indication: PULMONARY FIBROSIS
     Dosage: UNKNOWN
     Route: 065
  2. ALVESCO [Concomitant]
     Active Substance: CICLESONIDE
     Indication: PRODUCT USED FOR UNKNOWN INDICATION
     Route: 065
  3. SYMBICORT [Concomitant]
     Active Substance: BUDESONIDE\FORMOTEROL FUMARATE DIHYDRATE
     Indication: PRODUCT USED FOR UNKNOWN INDICATION
     Route: 065
  4. ENBREL [Suspect]
     Active Substance: ETANERCEPT
     Indication: ARTHRITIS
     Dosage: UNK
     Route: 065
     Dates: start: 2013
  5. PREDNISONE. [Concomitant]
     Active Substance: PREDNISONE
     Indication: PRODUCT USED FOR UNKNOWN INDICATION
     Route: 065
  6. XOLAIR [Suspect]
     Active Substance: OMALIZUMAB
     Indication: ASTHMA
     Dosage: 375 MG, BIW
     Route: 058
     Dates: start: 20100604
  7. XOLAIR [Suspect]
     Active Substance: OMALIZUMAB
     Dosage: 2 DF (EQUIVALENT TO 300 MG)
     Route: 058
     Dates: start: 20160808
  8. XOLAIR [Suspect]
     Active Substance: OMALIZUMAB
     Dosage: UNK
     Route: 058
  9. VENTOLIN [Concomitant]
     Active Substance: ALBUTEROL SULFATE
     Indication: PRODUCT USED FOR UNKNOWN INDICATION
     Route: 065
  10. REACTINE                                /CAN/ [Concomitant]
     Indication: PRODUCT USED FOR UNKNOWN INDICATION
     Route: 065

REACTIONS (27)
  - Pneumonia [Unknown]
  - Cerebral haemorrhage [Unknown]
  - Oral candidiasis [Unknown]
  - Arthritis [Unknown]
  - Incorrect drug dosage form administered [Unknown]
  - Inappropriate schedule of drug administration [None]
  - Hypersensitivity [Unknown]
  - Fracture [Unknown]
  - Pulmonary fibrosis [Unknown]
  - Forced expiratory volume decreased [Unknown]
  - Pain [Unknown]
  - Product preparation error [None]
  - Allergy to animal [Unknown]
  - Rhinorrhoea [Unknown]
  - Pneumonia viral [Unknown]
  - Lacrimation increased [Unknown]
  - Product reconstitution quality issue [Unknown]
  - Drug dose omission [None]
  - Fall [Unknown]
  - Secretion discharge [Unknown]
  - Vomiting [Unknown]
  - Mobility decreased [Unknown]
  - Cough [Not Recovered/Not Resolved]
  - Concomitant disease aggravated [Unknown]
  - Nasopharyngitis [Unknown]
  - Skin cancer [Unknown]
  - Contusion [Unknown]

NARRATIVE: CASE EVENT DATE: 201311
